FAERS Safety Report 9321882 (Version 5)
Quarter: 2013Q3

REPORT INFORMATION
  Report Type: Report from Study
  Country: GB (occurrence: GB)
  Receive Date: 20130531
  Receipt Date: 20130726
  Transmission Date: 20140515
  Serious: Yes (Other)
  Sender: FDA-Public Use
  Company Number: GB-VERTEX PHARMACEUTICALS INC-2013-005969

PATIENT
  Age: 44 Year
  Sex: Female

DRUGS (4)
  1. VX-950 (TELAPREVIR) [Suspect]
     Indication: HEPATITIS C
     Dosage: 750 MG, TID, TABLET
     Route: 048
     Dates: start: 20130508
  2. PEGINTERFERON ALFA-2A [Suspect]
     Indication: HEPATITIS C
     Dosage: DOSAGE FORM: INJECTION
     Route: 058
  3. COPEGUS [Suspect]
     Indication: HEPATITIS C
     Dosage: DOSAGE FORM: TABLET: EVERY 2 DAYS
     Route: 048
  4. COPEGUS [Suspect]
     Dosage: DOSAGE FORM: TABLET

REACTIONS (10)
  - Mouth ulceration [Not Recovered/Not Resolved]
  - Tongue ulceration [Not Recovered/Not Resolved]
  - Fatigue [Not Recovered/Not Resolved]
  - Myalgia [Recovered/Resolved]
  - Oral pain [Not Recovered/Not Resolved]
  - Oral herpes [Unknown]
  - Dry mouth [Unknown]
  - Muscle tightness [Not Recovered/Not Resolved]
  - Depressed mood [None]
  - Rash pruritic [Not Recovered/Not Resolved]
